FAERS Safety Report 8974225 (Version 1)
Quarter: 2012Q4

REPORT INFORMATION
  Report Type: Spontaneous
  Country: US (occurrence: None)
  Receive Date: 20121217
  Receipt Date: 20121217
  Transmission Date: 20130627
  Serious: No
  Sender: FDA-Public Use
  Company Number: None

PATIENT
  Age: 46 Year
  Sex: Female
  Weight: 77.11 kg

DRUGS (1)
  1. CYMBALTA [Suspect]
     Indication: PAIN
     Route: 048
     Dates: start: 20121124, end: 20121125

REACTIONS (7)
  - Nervousness [None]
  - Heart rate increased [None]
  - Panic attack [None]
  - Nausea [None]
  - Diarrhoea [None]
  - Feeling cold [None]
  - Impaired work ability [None]
